FAERS Safety Report 5097650-9 (Version None)
Quarter: 2006Q3

REPORT INFORMATION
  Report Type: 
  Country: None (occurrence: None)
  Receive Date: 20060901
  Receipt Date: 20060815
  Transmission Date: 20061208
  Serious: Yes (Hospitalization, Other)
  Sender: FDA-Public Use
  Company Number: US200606005372

PATIENT
  Age: 55 Year
  Sex: Female

DRUGS (22)
  1. FORTEO [Suspect]
     Indication: OSTEOPOROSIS
     Dosage: 20 UG, DAILY (1/D), SUBCUTANEOUS
     Route: 058
     Dates: start: 20060101
  2. FORTEO [Concomitant]
  3. PREDNISONE TAB [Concomitant]
  4. LEVAQUIN [Concomitant]
  5. EFFEXOR [Concomitant]
  6. SINGULAIR [Concomitant]
  7. RESTORIL [Concomitant]
  8. TRAZODONE HCL [Concomitant]
  9. LAMICTAL [Concomitant]
  10. MACROBID [Concomitant]
  11. PERCOCET [Concomitant]
  12. OXYCONTIN [Concomitant]
  13. SENOKOT [Concomitant]
  14. DILANTIN [Concomitant]
  15. CALCIUM W/VITAMIN D NOS (CALCIUM, VITAMIN D NOS) [Concomitant]
  16. MULTIVITAMINS (ASCORBIC ACID, ERGOCALCIFEROL, FOLIC ACID, NICOTINAMIDE [Concomitant]
  17. MINERALS NOS (MINERALS NOS) [Concomitant]
  18. PRILOSEC [Concomitant]
  19. ALBUTEROL (SALBUTAMOL) INHALER [Concomitant]
  20. FLOVENT (FLUTICASONE PROPIONATE) INHALER [Concomitant]
  21. SEREVENT DISKUS (SALMETEROL XINAFOATE) [Concomitant]
  22. PHENERGAN (PROMETHAZINE HYDROCHLORIDE) SUPPOSITORY [Concomitant]

REACTIONS (8)
  - ANAESTHETIC COMPLICATION [None]
  - DEVICE FAILURE [None]
  - DYSPNOEA [None]
  - INJECTION SITE BRUISING [None]
  - PHARMACEUTICAL PRODUCT COMPLAINT [None]
  - PNEUMONIA [None]
  - RESTRICTIVE PULMONARY DISEASE [None]
  - URINARY TRACT INFECTION [None]
